FAERS Safety Report 8396929-2 (Version None)
Quarter: 2012Q2

REPORT INFORMATION
  Report Type: 
  Country: None (occurrence: None)
  Receive Date: 20120530
  Receipt Date: 20120525
  Transmission Date: 20120825
  Serious: Yes (Death)
  Sender: FDA-Public Use
  Company Number: GB-PFIZER INC-2011026947

PATIENT
  Age: 36 Year
  Sex: Male
  Weight: 91.8 kg

DRUGS (10)
  1. MOVIPREP [Concomitant]
     Indication: LAXATIVE SUPPORTIVE CARE
     Dosage: 1 DF, 3X/DAY
     Route: 048
     Dates: start: 20110201
  2. INFUMORPH [Concomitant]
     Indication: PAIN
     Dosage: 90 MG, 2X/DAY
     Route: 048
     Dates: start: 20110201
  3. CO-DANTHRAMER [Concomitant]
     Indication: LAXATIVE SUPPORTIVE CARE
     Dosage: 1 DF, 2X/DAY
     Route: 048
     Dates: start: 20110201
  4. CRIZOTINIB [Suspect]
     Indication: NON-SMALL CELL LUNG CANCER STAGE IV
     Dosage: 250 MG
     Route: 048
     Dates: start: 20110204, end: 20110204
  5. DICLOFENAC [Concomitant]
     Indication: PAIN
     Dosage: 50 MG, 3X/DAY
     Route: 048
     Dates: start: 20110201
  6. DEXAMETHASONE [Concomitant]
     Indication: SWELLING
     Dosage: 4 MG, 2X/DAY
     Route: 048
     Dates: start: 20110201
  7. PARACETAMOL [Concomitant]
     Indication: PAIN
     Dosage: 1 G, 4X/DAY
     Route: 048
     Dates: start: 20110201
  8. LANSOPRAZOLE [Concomitant]
     Indication: PROPHYLAXIS
     Dosage: 30 MG, 1X/DAY
     Route: 048
     Dates: start: 20110201
  9. ENOXAPARIN [Concomitant]
     Dosage: 129 MG, 1X/DAY
     Route: 058
     Dates: start: 20110201
  10. DOCETAXEL [Suspect]
     Indication: NON-SMALL CELL LUNG CANCER
     Dosage: 110 MG, EVERY 3 WEEKS
     Route: 042
     Dates: start: 20100903, end: 20101216

REACTIONS (2)
  - PULMONARY EMBOLISM [None]
  - DEEP VEIN THROMBOSIS [None]
